FAERS Safety Report 11119902 (Version 2)
Quarter: 2015Q2

REPORT INFORMATION
  Report Type: Report from Study
  Country: US (occurrence: US)
  Receive Date: 20150518
  Receipt Date: 20150529
  Transmission Date: 20150821
  Serious: Yes (Hospitalization, Other)
  Sender: FDA-Public Use
  Company Number: US-ALEXION PHARMACEUTICALS INC.-A201501667

PATIENT

DRUGS (1)
  1. SOLIRIS [Suspect]
     Active Substance: ECULIZUMAB
     Indication: HAEMOLYTIC URAEMIC SYNDROME
     Dosage: UNK
     Route: 042

REACTIONS (8)
  - Unevaluable event [Unknown]
  - Blood creatinine abnormal [Unknown]
  - Blood lactate dehydrogenase abnormal [Unknown]
  - Platelet count abnormal [Unknown]
  - Haematocrit abnormal [Unknown]
  - Urine output decreased [Unknown]
  - Haemoglobin abnormal [Unknown]
  - Escherichia test positive [Unknown]

NARRATIVE: CASE EVENT DATE: 20150501
